FAERS Safety Report 9909119 (Version 1)
Quarter: 2014Q1

REPORT INFORMATION
  Report Type: Spontaneous
  Country: US (occurrence: None)
  Receive Date: 20140212
  Receipt Date: 20140212
  Transmission Date: 20141002
  Serious: Yes (Other)
  Sender: FDA-Public Use
  Company Number: AUR-APL-2014-01447

PATIENT
  Age: 82 Year
  Sex: Female

DRUGS (2)
  1. METOPROLOL [Suspect]
     Indication: BLOOD PRESSURE
     Dosage: (50 MG, 1 D), UNKNOWN
  2. CLONIDINE (CLONIDINE) [Suspect]
     Indication: HYPERTENSION
     Dosage: ONE-HALF TABLET OF 0.1 MG, IN THE AFTERNOON (0.1 MG), UNKNOWN

REACTIONS (2)
  - Blood pressure fluctuation [None]
  - Malaise [None]
